FAERS Safety Report 10251125 (Version 3)
Quarter: 2014Q2

REPORT INFORMATION
  Report Type: Spontaneous
  Country: GB (occurrence: GB)
  Receive Date: 20140620
  Receipt Date: 20140623
  Transmission Date: 20141212
  Serious: Yes (Other)
  Sender: FDA-Public Use
  Company Number: GB-PFIZER INC-2014083717

PATIENT
  Age: 63 Year
  Sex: Male
  Weight: 97 kg

DRUGS (4)
  1. SIMVASTATIN [Suspect]
     Indication: HYPERCHOLESTEROLAEMIA
     Dosage: 40 MG, DAILY
     Route: 048
     Dates: start: 20030101, end: 20130808
  2. AMLODIPINE BESILATE [Interacting]
     Dosage: 5 MG, UNK
     Route: 065
  3. CANDESARTAN CILEXETIL [Concomitant]
     Dosage: UNK
     Route: 065
  4. TAMSULOSIN HYDROCHLORIDE [Concomitant]
     Dosage: UNK
     Route: 065

REACTIONS (6)
  - Arthritis [Recovered/Resolved]
  - Joint swelling [Recovered/Resolved]
  - Pain in extremity [Recovered/Resolved]
  - Arthralgia [Recovered/Resolved]
  - Peripheral swelling [Recovered/Resolved]
  - Drug interaction [Unknown]
